FAERS Safety Report 9920810 (Version 2)
Quarter: 2014Q1

REPORT INFORMATION
  Report Type: Spontaneous
  Country: JP (occurrence: JP)
  Receive Date: 20140224
  Receipt Date: 20140224
  Transmission Date: 20141002
  Serious: Yes (Hospitalization)
  Sender: FDA-Public Use
  Company Number: JP-PFIZER INC-2014027177

PATIENT
  Age: 29 Year
  Sex: Female

DRUGS (2)
  1. CHAMPIX [Suspect]
     Dosage: UNK
     Route: 048
     Dates: end: 20140126
  2. CHAMPIX [Suspect]
     Dosage: UNK
     Route: 048
     Dates: start: 20140128

REACTIONS (2)
  - Endometriosis [Recovered/Resolved]
  - Endometriosis [Recovered/Resolved]
